FAERS Safety Report 19564280 (Version 1)
Quarter: 2021Q3

REPORT INFORMATION
  Report Type: Spontaneous
  Country: US (occurrence: US)
  Receive Date: 20210716
  Receipt Date: 20210716
  Transmission Date: 20211014
  Serious: Yes (Other)
  Sender: FDA-Public Use
  Company Number: None

PATIENT
  Age: 66 Year
  Sex: Male
  Weight: 72 kg

DRUGS (6)
  1. OMEPRAZOLE 10MG [Concomitant]
     Active Substance: OMEPRAZOLE
  2. NEUTROGENA ULTRA SHEER BODY MIST SUNSCREEN BROAD SPECTRUM SPF 100 PLUS [Suspect]
     Active Substance: AVOBENZONE\HOMOSALATE\OCTISALATE\OCTOCRYLENE\OXYBENZONE
     Indication: PROPHYLAXIS AGAINST SOLAR RADIATION
     Dosage: ?          QUANTITY:141 SPRAY(S);OTHER FREQUENCY:EVERY 2 HOURS;?
     Route: 061
     Dates: start: 20210331, end: 20210716
  3. CELEBREX [Concomitant]
     Active Substance: CELECOXIB
  4. NEUTROGENA BEACH DEFENSE WATER PLUS SUN PROTECTION SUNSCREEN BROAD SPECTRUM SPF70 [Suspect]
     Active Substance: AVOBENZONE\HOMOSALATE\OCTISALATE\OCTOCRYLENE\OXYBENZONE
  5. VITAMIN D3, B?12 [Concomitant]
  6. CLARITIN [Concomitant]
     Active Substance: LORATADINE

REACTIONS (5)
  - Pruritus [None]
  - Accidental exposure to product [None]
  - Productive cough [None]
  - Cough [None]
  - Blister [None]

NARRATIVE: CASE EVENT DATE: 20210401
